FAERS Safety Report 9404474 (Version 3)
Quarter: 2013Q3

REPORT INFORMATION
  Report Type: Spontaneous
  Country: US (occurrence: US)
  Receive Date: 20130717
  Receipt Date: 20130829
  Transmission Date: 20140515
  Serious: No
  Sender: FDA-Public Use
  Company Number: US-PFIZER INC-2013206470

PATIENT
  Age: 55 Year
  Sex: Female
  Weight: 102 kg

DRUGS (5)
  1. METFORMIN HCL [Suspect]
     Indication: DIABETES MELLITUS
     Dosage: 1000 MG, 1X/DAY
  2. GENOTROPIN [Suspect]
     Indication: BLOOD CHOLESTEROL DECREASED
     Dosage: UNK, 1X/DAY
     Dates: start: 201301
  3. GENOTROPIN [Suspect]
     Indication: FATIGUE
  4. GENOTROPIN [Suspect]
     Indication: ALOPECIA
  5. LISINOPRIL [Concomitant]
     Indication: HYPERTENSION
     Dosage: 10 MG, 1X/DAY

REACTIONS (1)
  - Blood glucose increased [Unknown]
